FAERS Safety Report 9468235 (Version 1)
Quarter: 2013Q3

REPORT INFORMATION
  Report Type: Spontaneous
  Country: IT (occurrence: IT)
  Receive Date: 20130821
  Receipt Date: 20130821
  Transmission Date: 20140515
  Serious: Yes (Hospitalization)
  Sender: FDA-Public Use
  Company Number: IT-BAYER-2013-099854

PATIENT
  Age: 61 Year
  Sex: Male

DRUGS (13)
  1. MOXIFLOXACIN ORAL [Suspect]
     Indication: EAR PAIN
     Dosage: UNK
     Route: 048
     Dates: start: 20130716, end: 20130717
  2. CARDIOASPIRIN [Concomitant]
  3. LASIX [Concomitant]
  4. ENAPREN [Concomitant]
  5. KANRENOL [Concomitant]
  6. REPAGLINIDE [Concomitant]
  7. MINITRAN [Concomitant]
  8. SEACOR [Concomitant]
  9. TIKLID [Concomitant]
  10. ANTRA [Concomitant]
  11. METFORMIN [Concomitant]
  12. BISOPROLOL [Concomitant]
  13. ALLOPURINOL [Concomitant]

REACTIONS (3)
  - Adverse drug reaction [Unknown]
  - Eyelid oedema [Unknown]
  - Rash macular [Unknown]
